FAERS Safety Report 7501970-5 (Version None)
Quarter: 2011Q2

REPORT INFORMATION
  Report Type: 
  Country: None (occurrence: None)
  Receive Date: 20110525
  Receipt Date: 20110513
  Transmission Date: 20111010
  Serious: No
  Sender: FDA-Public Use
  Company Number: US-ASTRAZENECA-2011SE02363

PATIENT
  Age: 75 Year
  Sex: Female
  Weight: 110.7 kg

DRUGS (1)
  1. ARIMIDEX [Suspect]
     Indication: BREAST CANCER
     Route: 048
     Dates: start: 20091106

REACTIONS (2)
  - OROPHARYNGEAL PAIN [None]
  - BRONCHITIS [None]
